FAERS Safety Report 17093247 (Version 2)
Quarter: 2019Q4

REPORT INFORMATION
  Report Type: Spontaneous
  Country: GR (occurrence: GR)
  Receive Date: 20191129
  Receipt Date: 20191212
  Transmission Date: 20200122
  Serious: Yes (Other)
  Sender: FDA-Public Use
  Company Number: GR-TEVA-2019-GR-1143712

PATIENT
  Age: 92 Year
  Sex: Female

DRUGS (3)
  1. QUETIAPINE. [Suspect]
     Active Substance: QUETIAPINE
     Indication: NERVOUS SYSTEM DISORDER
     Dosage: 400 MILLIGRAM DAILY;
     Route: 065
  2. MEMANTINE. [Suspect]
     Active Substance: MEMANTINE
     Indication: NERVOUS SYSTEM DISORDER
     Dosage: 10 MILLIGRAM DAILY;
     Route: 065
  3. FLECAINIDE [Interacting]
     Active Substance: FLECAINIDE
     Indication: CARDIAC DISORDER
     Dosage: 200 MILLIGRAM DAILY; 200MG/ DAILY, EVERY 12 HOURS IN TWO DOSES, OF 100MG EACH ONE
     Route: 065

REACTIONS (6)
  - Drug interaction [Unknown]
  - Device malfunction [Recovered/Resolved]
  - Stupor [Recovered/Resolved]
  - Electrocardiogram QT prolonged [Recovered/Resolved]
  - Acute kidney injury [Recovering/Resolving]
  - Electrocardiogram QRS complex prolonged [Recovered/Resolved]
